FAERS Safety Report 5092963-9 (Version None)
Quarter: 2006Q3

REPORT INFORMATION
  Report Type: 
  Country: None (occurrence: None)
  Receive Date: 20060830
  Receipt Date: 20060807
  Transmission Date: 20061208
  Serious: Yes (Death, Hospitalization, Other)
  Sender: FDA-Public Use
  Company Number: FR-BRISTOL-MYERS SQUIBB COMPANY-13471586

PATIENT
  Age: 56 Year
  Sex: Male

DRUGS (8)
  1. METFORMIN HYDROCHLORIDE [Suspect]
     Indication: DIABETES MELLITUS NON-INSULIN-DEPENDENT
     Dosage: INITIAL DOSE : 850MG TWICE DAILY, INCREASED TO 2550 DAILY IN MARCH-2006
     Route: 048
     Dates: start: 20060217, end: 20060424
  2. DIAMICRON [Concomitant]
     Indication: DIABETES MELLITUS NON-INSULIN-DEPENDENT
     Route: 048
     Dates: start: 20060424
  3. AMOXICILLIN + CLAVULANIC ACID [Concomitant]
     Indication: COUGH
     Dates: start: 20060424
  4. FORLAX [Concomitant]
     Indication: CONSTIPATION
     Dates: start: 20060424
  5. NORMACOL [Concomitant]
     Indication: CONSTIPATION
     Dates: start: 20060424
  6. CARBOCISTEINE [Concomitant]
     Indication: CONSTIPATION
     Dates: start: 20060424
  7. PIVALONE [Concomitant]
     Indication: CONSTIPATION
     Dates: start: 20060424
  8. IBUPROFEN [Concomitant]
     Indication: COUGH
     Dates: start: 20060424

REACTIONS (6)
  - CONSTIPATION [None]
  - COUGH [None]
  - FATIGUE [None]
  - GASTROINTESTINAL HAEMORRHAGE [None]
  - HEPATIC NEOPLASM MALIGNANT [None]
  - LIVER DISORDER [None]
